FAERS Safety Report 9392008 (Version 1)
Quarter: 2013Q3

REPORT INFORMATION
  Report Type: Spontaneous
  Country: US (occurrence: US)
  Receive Date: 20130709
  Receipt Date: 20130709
  Transmission Date: 20140515
  Serious: Yes (Other)
  Sender: FDA-Public Use
  Company Number: US-ELI_LILLY_AND_COMPANY-US201307000073

PATIENT
  Sex: 0

DRUGS (9)
  1. AXIRON [Suspect]
     Indication: BLOOD TESTOSTERONE DECREASED
     Dosage: 2 DF, BID
     Route: 050
     Dates: start: 201106
  2. OXYCONTIN [Concomitant]
     Dosage: UNK, UNKNOWN
     Route: 065
  3. FLEXERIL [Concomitant]
     Dosage: UNK, UNKNOWN
     Route: 065
  4. VOLTAREN EMULGEL [Concomitant]
     Dosage: UNK, UNKNOWN
     Route: 065
  5. ELMIRON [Concomitant]
     Dosage: UNK, UNKNOWN
     Route: 065
  6. DETROL [Concomitant]
     Dosage: UNK, UNKNOWN
     Route: 065
  7. TRAZODONE [Concomitant]
     Dosage: UNK, UNKNOWN
     Route: 065
  8. ZOPIDEM [Concomitant]
     Dosage: UNK, UNKNOWN
     Route: 065
  9. CYMBALTA [Concomitant]
     Dosage: UNK, UNKNOWN
     Route: 065

REACTIONS (7)
  - Diaphragmatic hernia [Unknown]
  - Blood testosterone abnormal [Unknown]
  - Intentional drug misuse [Unknown]
  - Drug tolerance [Unknown]
  - Fatigue [Unknown]
  - Feeling abnormal [Unknown]
  - Drug ineffective [Unknown]
